FAERS Safety Report 16694310 (Version 1)
Quarter: 2019Q3

REPORT INFORMATION
  Report Type: Spontaneous
  Country: US (occurrence: US)
  Receive Date: 20190812
  Receipt Date: 20190812
  Transmission Date: 20191004
  Serious: Yes (Other)
  Sender: FDA-Public Use
  Company Number: US-ELI_LILLY_AND_COMPANY-US201908001275

PATIENT
  Sex: Female

DRUGS (9)
  1. ATARAX [ALPRAZOLAM] [Concomitant]
     Active Substance: ALPRAZOLAM
     Indication: HYPERSENSITIVITY
  2. BENADRYL [Concomitant]
     Active Substance: DIPHENHYDRAMINE HYDROCHLORIDE
     Indication: HYPERSENSITIVITY
  3. HUMULIN N [Suspect]
     Active Substance: INSULIN HUMAN
     Indication: TYPE 2 DIABETES MELLITUS
     Dosage: 50 U, BID (46-50UNITS)
     Route: 058
  4. ALBUTEROL [SALBUTAMOL SULFATE] [Concomitant]
     Active Substance: ALBUTEROL SULFATE
     Indication: HYPERSENSITIVITY
  5. VENTOLIN [Concomitant]
     Active Substance: ALBUTEROL SULFATE
     Indication: HYPERSENSITIVITY
  6. SINGULAIR [Concomitant]
     Active Substance: MONTELUKAST SODIUM
     Indication: HYPERSENSITIVITY
  7. XYZAL [Concomitant]
     Active Substance: LEVOCETIRIZINE DIHYDROCHLORIDE
     Indication: HYPERSENSITIVITY
  8. HUMULIN N [Suspect]
     Active Substance: INSULIN HUMAN
     Dosage: 50 U, PRN (AT BEDTIME)
     Route: 058
  9. LASIX [Concomitant]
     Active Substance: FUROSEMIDE
     Indication: FLUID RETENTION
     Dosage: UNK

REACTIONS (21)
  - Headache [Unknown]
  - Anxiety [Unknown]
  - Irritability [Unknown]
  - Agitation [Unknown]
  - Food allergy [Unknown]
  - Sinusitis [Unknown]
  - Skin mass [Unknown]
  - Musculoskeletal stiffness [Unknown]
  - Gait disturbance [Unknown]
  - Weight increased [Unknown]
  - Feeling abnormal [Unknown]
  - Dizziness [Unknown]
  - Photopsia [Unknown]
  - Mood altered [Unknown]
  - Malaise [Unknown]
  - Bronchitis [Unknown]
  - Hyperhidrosis [Unknown]
  - Arthropod sting [Unknown]
  - Waist circumference increased [Unknown]
  - Hypersensitivity [Unknown]
  - Pruritus [Unknown]
